FAERS Safety Report 11003607 (Version 1)
Quarter: 2015Q2

REPORT INFORMATION
  Report Type: Spontaneous
  Country: SG (occurrence: SG)
  Receive Date: 20150409
  Receipt Date: 20150409
  Transmission Date: 20150821
  Serious: Yes (Other)
  Sender: FDA-Public Use
  Company Number: SG-BAYER-2015-097752

PATIENT
  Age: 31 Year
  Sex: Female

DRUGS (1)
  1. ACETYLSALICYLIC ACID (} 100 MG) [Suspect]
     Active Substance: ASPIRIN
     Dosage: UNK, UNK

REACTIONS (2)
  - Swelling face [Unknown]
  - Lacrimation increased [Unknown]

NARRATIVE: CASE EVENT DATE: 19980101
